FAERS Safety Report 14333612 (Version 1)
Quarter: 2017Q4

REPORT INFORMATION
  Report Type: Spontaneous
  Country: US (occurrence: US)
  Receive Date: 20171228
  Receipt Date: 20171228
  Transmission Date: 20180321
  Serious: Yes (Other)
  Sender: FDA-Public Use
  Company Number: US-SA-2017SA266204

PATIENT
  Age: 70 Year
  Sex: Female

DRUGS (2)
  1. GLUCOPHAGE [Concomitant]
     Active Substance: METFORMIN HYDROCHLORIDE
     Route: 065
  2. LANTUS [Suspect]
     Active Substance: INSULIN GLARGINE
     Route: 051
     Dates: end: 201712

REACTIONS (3)
  - Corneal disorder [Unknown]
  - Glycosylated haemoglobin increased [Unknown]
  - Weight decreased [Unknown]
